FAERS Safety Report 15028560 (Version 1)
Quarter: 2018Q2

REPORT INFORMATION
  Report Type: Spontaneous
  Country: US (occurrence: US)
  Receive Date: 20180619
  Receipt Date: 20180619
  Transmission Date: 20180711
  Serious: No
  Sender: FDA-Public Use
  Company Number: US-GLAXOSMITHKLINE-US2018GSK108177

PATIENT
  Age: 17 Year
  Sex: Male

DRUGS (1)
  1. ACITRETIN CAPSULE [Suspect]
     Active Substance: ACITRETIN
     Indication: HYPERKERATOSIS
     Dosage: UNK
     Route: 065
     Dates: start: 20180204, end: 20180511

REACTIONS (4)
  - Skin exfoliation [Recovering/Resolving]
  - Product use in unapproved indication [Unknown]
  - Drug prescribing error [Unknown]
  - Therapeutic response unexpected [Unknown]

NARRATIVE: CASE EVENT DATE: 201802
